FAERS Safety Report 11221137 (Version 1)
Quarter: 2015Q2

REPORT INFORMATION
  Report Type: Spontaneous
  Country: US (occurrence: None)
  Receive Date: 20150625
  Receipt Date: 20150625
  Transmission Date: 20150821
  Serious: No
  Sender: FDA-Public Use
  Company Number: None

PATIENT
  Age: 58 Year
  Sex: Female
  Weight: 86.18 kg

DRUGS (4)
  1. LEVOFLOXACIN. [Suspect]
     Active Substance: LEVOFLOXACIN
     Indication: PNEUMONIA
     Dosage: 1 PILL
     Route: 048
     Dates: start: 20150620, end: 20150621
  2. TYLENOL [Concomitant]
     Active Substance: ACETAMINOPHEN
  3. LEMON WATER [Concomitant]
  4. MUCINEX D [Concomitant]
     Active Substance: GUAIFENESIN\PSEUDOEPHEDRINE HYDROCHLORIDE

REACTIONS (12)
  - Dizziness [None]
  - Palpitations [None]
  - Middle insomnia [None]
  - Agitation [None]
  - Malaise [None]
  - Thinking abnormal [None]
  - Violence-related symptom [None]
  - Nausea [None]
  - Delusion [None]
  - Suicidal ideation [None]
  - Adverse drug reaction [None]
  - Hyperhidrosis [None]

NARRATIVE: CASE EVENT DATE: 20150621
